FAERS Safety Report 8236531-6 (Version None)
Quarter: 2012Q1

REPORT INFORMATION
  Report Type: 
  Country: None (occurrence: None)
  Receive Date: 20120327
  Receipt Date: 20120319
  Transmission Date: 20120608
  Serious: Yes (Life-Threatening, Hospitalization)
  Sender: FDA-Public Use
  Company Number: US-BAYER-2011-074223

PATIENT
  Age: 41 Year
  Sex: Female
  Weight: 74.83 kg

DRUGS (2)
  1. YAZ [Suspect]
     Indication: CONTRACEPTION
     Dosage: UNK
     Route: 048
     Dates: start: 20080601, end: 20080901
  2. PROTONIX [Concomitant]
     Indication: ULCER
     Dosage: UNK
     Dates: start: 20080101, end: 20090101

REACTIONS (5)
  - INJURY [None]
  - MENTAL DISORDER [None]
  - DEEP VEIN THROMBOSIS [None]
  - INJECTION SITE SCAR [None]
  - EMOTIONAL DISTRESS [None]
